FAERS Safety Report 26070376 (Version 2)
Quarter: 2025Q4

REPORT INFORMATION
  Report Type: Report from Study
  Country: US (occurrence: US)
  Receive Date: 20251120
  Receipt Date: 20251208
  Transmission Date: 20260117
  Serious: Yes (Hospitalization, Other)
  Sender: ELI LILLY AND COMPANY
  Company Number: US-ELI_LILLY_AND_COMPANY-US202507020954

PATIENT
  Age: 85 Year
  Sex: Male

DRUGS (3)
  1. KISUNLA [Suspect]
     Active Substance: DONANEMAB-AZBT
     Indication: Product used for unknown indication
     Dosage: UNK UNK, UNKNOWN (FIRST INFUSION)
     Route: 065
  2. KISUNLA [Suspect]
     Active Substance: DONANEMAB-AZBT
     Dosage: UNK UNK, UNKNOWN (SECOND INFUSION)
     Route: 065
     Dates: start: 20250702
  3. KISUNLA [Suspect]
     Active Substance: DONANEMAB-AZBT
     Dosage: UNK UNK, UNKNOWN (THIRD INFUSION)
     Route: 065
     Dates: start: 20250730

REACTIONS (13)
  - Cerebral thrombosis [Unknown]
  - Cerebrovascular accident [Unknown]
  - Cerebrovascular accident [Unknown]
  - Asthenia [Unknown]
  - Gait disturbance [Unknown]
  - Dysarthria [Unknown]
  - Cerebral haemorrhage [Unknown]
  - Ocular hyperaemia [Unknown]
  - Contusion [Unknown]
  - Balance disorder [Not Recovered/Not Resolved]
  - Blood pressure systolic increased [Recovered/Resolved]
  - Dysphagia [Unknown]
  - Nausea [Unknown]

NARRATIVE: CASE EVENT DATE: 20250721
